FAERS Safety Report 6525233-X (Version None)
Quarter: 2009Q4

REPORT INFORMATION
  Report Type: 
  Country: None (occurrence: None)
  Receive Date: 20091214
  Receipt Date: 20090303
  Transmission Date: 20100525
  Serious: Yes (Hospitalization)
  Sender: FDA-Public Use
  Company Number: 618144

PATIENT
  Age: 56 Year
  Sex: Female

DRUGS (1)
  1. PEG-INTERFERON A-2A (RO 25-8310) (PEG-INTERFERON ALFA 2A) [Suspect]
     Indication: DRUG USE FOR UNKNOWN INDICATION

REACTIONS (2)
  - HEPATITIS C [None]
  - HEPATOMEGALY [None]
